FAERS Safety Report 8553815 (Version 4)
Quarter: 2013Q1

REPORT INFORMATION
  Report Type: Report from Study
  Country: US (occurrence: US)
  Receive Date: 20120509
  Receipt Date: 20130104
  Transmission Date: 20140127
  Serious: Yes (Hospitalization, Other)
  Sender: FDA-Public Use
  Company Number: US-ROCHE-1014871

PATIENT
  Age: 67 Year
  Sex: Male
  Weight: 73 kg

DRUGS (1)
  1. VISMODEGIB [Suspect]
     Indication: CHONDROSARCOMA
     Dosage: CYCLE=28 DAYS,QD, TOTAL DOSE:4200 MG, LAST DOSE PRIOR TO SAE: 8/JAN/2011
     Route: 048
     Dates: start: 20110314

REACTIONS (2)
  - Anaemia [Recovered/Resolved]
  - Dehydration [Recovered/Resolved with Sequelae]
